FAERS Safety Report 17896897 (Version 1)
Quarter: 2020Q2

REPORT INFORMATION
  Report Type: Spontaneous
  Country: BR (occurrence: BR)
  Receive Date: 20200615
  Receipt Date: 20200615
  Transmission Date: 20200714
  Serious: Yes (Hospitalization)
  Sender: FDA-Public Use
  Company Number: BR-ABBVIE-20P-020-3445481-00

PATIENT
  Sex: Female

DRUGS (5)
  1. DEPAKENE [Suspect]
     Active Substance: VALPROIC ACID
     Indication: EPILEPSY
     Dosage: DEPAKENE 50MG/ML
     Route: 048
     Dates: start: 2009, end: 2017
  2. DIVALCON [Suspect]
     Active Substance: DIVALPROEX SODIUM
     Indication: EPILEPSY
     Dosage: TWICE A DAY, ADMINISTERED AT 8AM AND 8PM; DIVALCON ER 500MG
     Route: 048
     Dates: start: 20200525
  3. DEPAKOTE ER [Suspect]
     Active Substance: DIVALPROEX SODIUM
     Indication: EPILEPSY
     Dosage: TWICE A DAY; ADMINISTERED AT 8AM AND 8PM; END DATE: SUBSTITUTED BY DIVALCON ER
     Route: 048
     Dates: start: 2018
  4. DEPAKENE [Suspect]
     Active Substance: VALPROIC ACID
     Indication: EPILEPSY
     Dosage: THRICE A DAY; USED FOR 6 MONTHS AFTER DEPAKENE SYRUP
     Route: 048
     Dates: start: 2017
  5. DORFLEX [Concomitant]
     Active Substance: CAFFEINE\DIPYRONE\ORPHENADRINE
     Indication: HEADACHE
     Dosage: TAKEN SPORADICALLY

REACTIONS (10)
  - Decreased appetite [Not Recovered/Not Resolved]
  - Inappropriate schedule of product administration [Unknown]
  - Product dispensing error [Unknown]
  - Somnolence [Recovered/Resolved]
  - Vomiting [Not Recovered/Not Resolved]
  - Dizziness [Not Recovered/Not Resolved]
  - Off label use [Unknown]
  - Hyperthyroidism [Unknown]
  - Epilepsy [Recovered/Resolved]
  - Product use issue [Unknown]

NARRATIVE: CASE EVENT DATE: 2009
